FAERS Safety Report 4793629-2 (Version None)
Quarter: 2005Q4

REPORT INFORMATION
  Report Type: 
  Country: None (occurrence: None)
  Receive Date: 20051011
  Receipt Date: 20050926
  Transmission Date: 20060501
  Serious: Yes (Death)
  Sender: FDA-Public Use
  Company Number: ES-BOEHRINGER INGELHEIM PHARMACEUTICALS, INC.-2005-ES-00271ES

PATIENT
  Sex: Male
  Weight: 80 kg

DRUGS (4)
  1. TIPRANAVIR + RITONAVIR CO-ADMIN [Suspect]
     Indication: HIV INFECTION
     Dosage: TIPRANAVIR 1000MG + RITONAVIR 400MG
     Route: 048
     Dates: start: 20041025, end: 20050718
  2. SUSTIVA [Concomitant]
     Indication: HIV INFECTION
     Route: 048
     Dates: start: 20030319, end: 20050718
  3. VIREAD [Concomitant]
     Indication: HIV INFECTION
     Route: 048
     Dates: start: 20030319, end: 20050718
  4. ZERIT [Concomitant]
     Indication: HIV INFECTION
     Route: 048
     Dates: start: 20041025, end: 20050718

REACTIONS (1)
  - CYTOMEGALOVIRUS INFECTION [None]
